FAERS Safety Report 7042668-X (Version None)
Quarter: 2010Q4

REPORT INFORMATION
  Report Type: 
  Country: None (occurrence: None)
  Receive Date: 20101013
  Receipt Date: 20100621
  Transmission Date: 20110411
  Serious: No
  Sender: FDA-Public Use
  Company Number: US-ASTRAZENECA-2010SE29118

PATIENT
  Sex: Male
  Weight: 73.9 kg

DRUGS (2)
  1. SYMBICORT [Suspect]
     Indication: EMPHYSEMA
     Route: 055
  2. NIFEDIFINE [Concomitant]

REACTIONS (1)
  - BODY TEMPERATURE DECREASED [None]
